FAERS Safety Report 25196580 (Version 3)
Quarter: 2025Q2

REPORT INFORMATION
  Report Type: Report from Study
  Country: CN (occurrence: CN)
  Receive Date: 20250415
  Receipt Date: 20250526
  Transmission Date: 20250716
  Serious: No
  Sender: MERCK SHARP & DOHME LLC
  Company Number: CN-009507513-2275178

PATIENT
  Age: 71 Year
  Sex: Female

DRUGS (2)
  1. LAGEVRIO [Suspect]
     Active Substance: MOLNUPIRAVIR
     Indication: COVID-19 treatment
     Dosage: 0.8 G, EVERY 12 HOURS
     Route: 048
     Dates: start: 20240419, end: 20240423
  2. LAGEVRIO [Suspect]
     Active Substance: MOLNUPIRAVIR
     Indication: COVID-19 treatment
     Dosage: 0.8 G, EVERY 12 HOURS
     Route: 048
     Dates: start: 20240430, end: 20240505

REACTIONS (2)
  - Decreased immune responsiveness [Unknown]
  - Incorrect product administration duration [Unknown]

NARRATIVE: CASE EVENT DATE: 20240430
